FAERS Safety Report 9399773 (Version 2)
Quarter: 2013Q4

REPORT INFORMATION
  Report Type: Spontaneous
  Country: GB (occurrence: GB)
  Receive Date: 20130710
  Receipt Date: 20131113
  Transmission Date: 20140711
  Serious: Yes (Other)
  Sender: FDA-Public Use
  Company Number: BTG00074

PATIENT
  Sex: Male

DRUGS (2)
  1. VORAXAZE [Suspect]
     Indication: TOXICITY TO VARIOUS AGENTS
  2. METHOTREXATE (METHOTREXATE) [Concomitant]

REACTIONS (3)
  - Renal failure acute [None]
  - Drug effect incomplete [None]
  - No therapeutic response [None]
